FAERS Safety Report 5369528-4 (Version None)
Quarter: 2007Q2

REPORT INFORMATION
  Report Type: 
  Country: None (occurrence: None)
  Receive Date: 20070625
  Receipt Date: 20070620
  Transmission Date: 20071010
  Serious: Yes (Hospitalization)
  Sender: FDA-Public Use
  Company Number: B0472807A

PATIENT
  Age: 63 Year
  Sex: Male
  Weight: 96.5 kg

DRUGS (7)
  1. ROSIGLITAZONE [Suspect]
     Dosage: 4MG PER DAY
     Route: 048
     Dates: start: 20030117
  2. GLUCOPHAGE [Concomitant]
     Dosage: 2000MG PER DAY
     Route: 048
     Dates: start: 19970101
  3. IPREN [Concomitant]
     Indication: SCIATICA
     Dosage: 400MG PER DAY
     Route: 048
     Dates: start: 20030615
  4. LASIX [Concomitant]
     Dosage: 30MG PER DAY
     Route: 048
     Dates: start: 20030803
  5. NAXOPREN [Concomitant]
     Route: 048
     Dates: start: 20031101
  6. DICLOFENAC [Concomitant]
     Dosage: 100MG PER DAY
     Route: 048
     Dates: start: 20031110
  7. ASPIRIN [Concomitant]

REACTIONS (2)
  - ANGINA UNSTABLE [None]
  - CHEST PAIN [None]
